FAERS Safety Report 6634043-4 (Version None)
Quarter: 2010Q1

REPORT INFORMATION
  Report Type: 
  Country: None (occurrence: None)
  Receive Date: 20100315
  Receipt Date: 20100305
  Transmission Date: 20100710
  Serious: Yes (Hospitalization)
  Sender: FDA-Public Use
  Company Number: FR-NOVOPROD-304140

PATIENT
  Age: 51 Year
  Sex: Male
  Weight: 67 kg

DRUGS (11)
  1. NOVONORM [Suspect]
     Indication: DIABETES MELLITUS
     Dosage: UNK
     Route: 048
     Dates: start: 20090101
  2. CELLCEPT [Suspect]
     Dosage: 500 MG, QD
     Dates: start: 20090701
  3. RAPAMUNE [Concomitant]
     Dosage: UNK
     Dates: start: 20090101
  4. RAPAMUNE [Concomitant]
     Dosage: 1.5 MBQ, QD
  5. CORTANCYL [Concomitant]
     Dosage: UNK
     Dates: start: 20090101
  6. OXYCODONE HCL [Concomitant]
     Dosage: UNK
     Dates: start: 20090101
  7. METHADONE HYDROCHLORIDE [Concomitant]
     Dosage: UNK
     Dates: start: 20090101
  8. ORACILLINE                         /00001801/ [Concomitant]
     Dosage: UNK
     Dates: start: 20090101
  9. ZELITREX                           /01269701/ [Concomitant]
     Dosage: UNK
     Dates: start: 20090101
  10. CYCLOSPORINE [Concomitant]
     Dosage: UNK
     Dates: start: 20090101
  11. CREON [Concomitant]
     Dosage: 25000 CAPS, EVERY THIRD DAY

REACTIONS (2)
  - ABDOMINAL PAIN [None]
  - DIARRHOEA [None]
